FAERS Safety Report 19247998 (Version 1)
Quarter: 2021Q2

REPORT INFORMATION
  Report Type: Spontaneous
  Country: US (occurrence: US)
  Receive Date: 20210512
  Receipt Date: 20210512
  Transmission Date: 20210717
  Serious: No
  Sender: FDA-Public Use
  Company Number: US-UCBSA-2020024393

PATIENT
  Sex: Female
  Weight: 81.19 kg

DRUGS (1)
  1. CIMZIA [Suspect]
     Active Substance: CERTOLIZUMAB PEGOL
     Indication: PSORIATIC ARTHROPATHY
     Dosage: 400 MILLIGRAM, EV 2 WEEKS(QOW)
     Route: 058
     Dates: start: 2019, end: 202002

REACTIONS (3)
  - Suspected COVID-19 [Unknown]
  - Therapeutic product effect decreased [Unknown]
  - Pain [Unknown]

NARRATIVE: CASE EVENT DATE: 2019
